FAERS Safety Report 5915539-7 (Version None)
Quarter: 2008Q4

REPORT INFORMATION
  Report Type: 
  Country: None (occurrence: None)
  Receive Date: 20081010
  Receipt Date: 20080702
  Transmission Date: 20090506
  Serious: No
  Sender: FDA-Public Use
  Company Number: A0736774A

PATIENT
  Age: 46 Year
  Sex: Female

DRUGS (2)
  1. TYKERB [Suspect]
     Indication: DRUG USE FOR UNKNOWN INDICATION
     Dosage: 5TAB PER DAY
     Route: 048
     Dates: start: 20080627
  2. XELODA [Suspect]
     Indication: DRUG USE FOR UNKNOWN INDICATION
     Dosage: 4TAB PER DAY
     Route: 048
     Dates: start: 20080627

REACTIONS (4)
  - ASTHENIA [None]
  - DIARRHOEA [None]
  - HEADACHE [None]
  - SLUGGISHNESS [None]
